FAERS Safety Report 5489252-7 (Version None)
Quarter: 2007Q4

REPORT INFORMATION
  Report Type: 
  Country: None (occurrence: None)
  Receive Date: 20071016
  Receipt Date: 20071003
  Transmission Date: 20080405
  Serious: Yes (Other)
  Sender: FDA-Public Use
  Company Number: 019241

PATIENT
  Age: 25 Year
  Sex: Female

DRUGS (2)
  1. CLARAVIS [Suspect]
     Dosage: 20 MG, QD, ORAL
     Route: 048
     Dates: start: 20070515, end: 20070701
  2. CLARAVIS [Suspect]
     Dosage: 20 MG, QD, ORAL
     Route: 048
     Dates: start: 20070831, end: 20071001

REACTIONS (3)
  - DRUG EXPOSURE DURING PREGNANCY [None]
  - PREGNANCY WITH CONTRACEPTIVE DEVICE [None]
  - TREATMENT FAILURE [None]
